FAERS Safety Report 7833589-0 (Version None)
Quarter: 2011Q4

REPORT INFORMATION
  Report Type: 
  Country: None (occurrence: None)
  Receive Date: 20111024
  Receipt Date: 20111010
  Transmission Date: 20120403
  Serious: Yes (Other)
  Sender: FDA-Public Use
  Company Number: CN-MYLANLABS-2011S1021499

PATIENT
  Age: 38 Month
  Sex: Male
  Weight: 14 kg

DRUGS (1)
  1. DIPHENOXYLATE HYDROCHLORIDE AND ATROPINE SULFATE TABLETS [Suspect]
     Indication: ACCIDENTAL DRUG INTAKE BY CHILD
     Dosage: DF: DIPHENOYLATE 2.5MG / ATROPINE 0.025MG TABLETS
     Route: 048

REACTIONS (7)
  - FLUSHING [None]
  - PYREXIA [None]
  - TOXIC ENCEPHALOPATHY [None]
  - ACCIDENTAL OVERDOSE [None]
  - COMA [None]
  - CONVULSION [None]
  - MYDRIASIS [None]
